FAERS Safety Report 8517861-7 (Version None)
Quarter: 2012Q3

REPORT INFORMATION
  Report Type: 
  Country: None (occurrence: None)
  Receive Date: 20120718
  Receipt Date: 20110624
  Transmission Date: 20120928
  Serious: No
  Sender: FDA-Public Use
  Company Number: US-BRISTOL-MYERS SQUIBB COMPANY-15848872

PATIENT
  Age: 72 Year
  Sex: Female

DRUGS (5)
  1. MULTAQ [Suspect]
     Indication: ATRIAL FIBRILLATION
     Dosage: 3DAYS;400MG,ONGOING
     Route: 048
     Dates: start: 20110601
  2. DIGOXIN [Concomitant]
  3. CELEXA [Concomitant]
  4. COUMADIN [Suspect]
  5. METOPROLOL SUCCINATE [Concomitant]

REACTIONS (9)
  - ABDOMINAL PAIN [None]
  - GASTROINTESTINAL DISORDER [None]
  - ASTHENIA [None]
  - ERUCTATION [None]
  - ABDOMINAL DISCOMFORT [None]
  - INTERNATIONAL NORMALISED RATIO INCREASED [None]
  - CONSTIPATION [None]
  - HYPERHIDROSIS [None]
  - FATIGUE [None]
